FAERS Safety Report 16008248 (Version 1)
Quarter: 2019Q1

REPORT INFORMATION
  Report Type: Spontaneous
  Country: US (occurrence: US)
  Receive Date: 20190226
  Receipt Date: 20190226
  Transmission Date: 20190418
  Serious: Yes (Other)
  Sender: FDA-Public Use
  Company Number: US-ASTRAZENECA-2019SE28966

PATIENT
  Age: 71 Year
  Sex: Female

DRUGS (15)
  1. IBRANCE [Suspect]
     Active Substance: PALBOCICLIB
     Indication: BREAST CANCER METASTATIC
     Dosage: 125 MG FOR 21 DAYS THEN 7 DAYS OFF
     Route: 048
     Dates: start: 20161020, end: 20161208
  2. MULTIVITAMIN [Concomitant]
     Active Substance: VITAMINS
  3. ABRAXANE [Suspect]
     Active Substance: PACLITAXEL
     Indication: BREAST CANCER METASTATIC
     Route: 065
     Dates: start: 20170307
  4. CALCIUM CARBONATE/CALCIUM [Concomitant]
  5. IBUPROFEN. [Concomitant]
     Active Substance: IBUPROFEN
  6. VITAMIN D3 [Concomitant]
     Active Substance: CHOLECALCIFEROL
  7. FASLODEX [Suspect]
     Active Substance: FULVESTRANT
     Indication: BREAST CANCER METASTATIC
     Dosage: 500.0MG UNKNOWN
     Route: 030
     Dates: start: 20161025, end: 20161208
  8. ZOLEDRONIC ACID [Concomitant]
     Active Substance: ZOLEDRONIC ACID
     Dates: start: 20161209
  9. POTASSIUM [Concomitant]
     Active Substance: POTASSIUM
  10. IRON [Concomitant]
     Active Substance: IRON
  11. VITAMIN B-6 [Concomitant]
     Active Substance: PYRIDOXINE
  12. FASLODEX [Suspect]
     Active Substance: FULVESTRANT
     Indication: BREAST CANCER METASTATIC
     Dosage: 500.0MG UNKNOWN
     Route: 030
     Dates: start: 20161208, end: 20170214
  13. CHEMOTHERAPY [Concomitant]
     Active Substance: UNSPECIFIED INGREDIENT
     Indication: BREAST CANCER METASTATIC
     Dates: start: 20160524, end: 20160923
  14. ASPIRIN. [Concomitant]
     Active Substance: ASPIRIN
     Dates: start: 20170104
  15. DOCUSATE SODIUM. [Concomitant]
     Active Substance: DOCUSATE SODIUM

REACTIONS (3)
  - Pancytopenia [Unknown]
  - Dyspnoea exertional [Unknown]
  - Hypercalcaemia [Unknown]
